FAERS Safety Report 10385924 (Version 1)
Quarter: 2014Q3

REPORT INFORMATION
  Report Type: Spontaneous
  Country: IN (occurrence: None)
  Receive Date: 20140812
  Receipt Date: 20140812
  Transmission Date: 20150326
  Serious: Yes (Other)
  Sender: FDA-Public Use
  Company Number: FK201403233

PATIENT
  Age: 41 Year
  Sex: Male

DRUGS (8)
  1. MESNA (MESNA) [Suspect]
     Active Substance: MESNA
     Indication: ANGIOCENTRIC LYMPHOMA
  2. LEUCOVORIN CALCIUM (LEUCOVORIN CALCIUM) [Suspect]
     Active Substance: LEUCOVORIN CALCIUM
     Indication: ANGIOCENTRIC LYMPHOMA
  3. RITUXIMAB (RITUXIMAB) [Concomitant]
     Active Substance: RITUXIMAB
  4. HYDROCORTISONE (HYDROCORTISONE) [Suspect]
     Active Substance: HYDROCORTISONE
     Indication: ANGIOCENTRIC LYMPHOMA
  5. IFOSFAMIDE (IFOSFAMIDE) [Suspect]
     Active Substance: IFOSFAMIDE
     Indication: ANGIOCENTRIC LYMPHOMA
  6. ETOPOSIDE (ETOPOSIDE) [Suspect]
     Active Substance: ETOPOSIDE
     Indication: ANGIOCENTRIC LYMPHOMA
  7. CYTARABINE (CYTARABINE) [Suspect]
     Active Substance: CYTARABINE
     Indication: ANGIOCENTRIC LYMPHOMA
  8. METHOTREXATE (METHOTREXATE) [Suspect]
     Active Substance: METHOTREXATE
     Indication: ANGIOCENTRIC LYMPHOMA

REACTIONS (6)
  - Computerised tomogram head abnormal [None]
  - Condition aggravated [None]
  - Somnolence [None]
  - Hydrocephalus [None]
  - Incoherent [None]
  - Nystagmus [None]
